FAERS Safety Report 15960500 (Version 1)
Quarter: 2019Q1

REPORT INFORMATION
  Report Type: Spontaneous
  Country: US (occurrence: US)
  Receive Date: 20190213
  Receipt Date: 20190213
  Transmission Date: 20190417
  Serious: No
  Sender: FDA-Public Use
  Company Number: None

PATIENT
  Age: 65 Year
  Sex: Female
  Weight: 78.75 kg

DRUGS (7)
  1. CYMBALTA [Concomitant]
     Active Substance: DULOXETINE HYDROCHLORIDE
  2. ASA [Concomitant]
     Active Substance: ASPIRIN
  3. HCTZ [Concomitant]
     Active Substance: HYDROCHLOROTHIAZIDE
  4. METOPROLOL. [Concomitant]
     Active Substance: METOPROLOL
  5. AIMOVIG [Suspect]
     Active Substance: ERENUMAB-AOOE
     Indication: MIGRAINE
     Dosage: ?          QUANTITY:1 INJECTION(S);OTHER FREQUENCY:ONCE A MONTH;OTHER ROUTE:PREFILLED SYRINGE SUBCUTANEOUSLY?
     Route: 058
     Dates: start: 20181205, end: 20190106
  6. LEVOTHYROXINE. [Concomitant]
     Active Substance: LEVOTHYROXINE
  7. OLMESARTAN [Concomitant]
     Active Substance: OLMESARTAN

REACTIONS (1)
  - Alopecia [None]

NARRATIVE: CASE EVENT DATE: 20190201
